FAERS Safety Report 14498938 (Version 1)
Quarter: 2018Q1

REPORT INFORMATION
  Report Type: Spontaneous
  Country: IT (occurrence: IT)
  Receive Date: 20180207
  Receipt Date: 20180207
  Transmission Date: 20180509
  Serious: Yes (Other)
  Sender: FDA-Public Use
  Company Number: IT-TEVA-2018-IT-854220

PATIENT
  Sex: Female

DRUGS (1)
  1. COPAXONE [Suspect]
     Active Substance: GLATIRAMER ACETATE
     Dates: start: 201709

REACTIONS (7)
  - Nausea [Unknown]
  - Tongue discomfort [Unknown]
  - Choking [Unknown]
  - Injection site rash [Unknown]
  - Body temperature abnormal [Unknown]
  - Wrong technique in product usage process [Unknown]
  - Tachycardia [Unknown]

NARRATIVE: CASE EVENT DATE: 20180124
